FAERS Safety Report 15130241 (Version 2)
Quarter: 2018Q3

REPORT INFORMATION
  Report Type: Spontaneous
  Country: US (occurrence: US)
  Receive Date: 20180711
  Receipt Date: 20180712
  Transmission Date: 20181010
  Serious: Yes (Other)
  Sender: FDA-Public Use
  Company Number: PHEH2018US028114

PATIENT
  Sex: Male

DRUGS (4)
  1. AMIODARONE HYDROCHLORIDE. [Suspect]
     Active Substance: AMIODARONE HYDROCHLORIDE
     Indication: ATRIAL FIBRILLATION
     Route: 048
     Dates: start: 201411
  2. AMIODARONE TEVA [Suspect]
     Active Substance: AMIODARONE
     Indication: ATRIAL FIBRILLATION
     Route: 065
  3. AMIODARONE ZYDUS [Suspect]
     Active Substance: AMIODARONE
     Indication: ATRIAL FIBRILLATION
     Route: 065
  4. AMIODARONE HYDROCHLORIDE. [Suspect]
     Active Substance: AMIODARONE HYDROCHLORIDE
     Indication: ATRIAL FIBRILLATION
     Route: 065

REACTIONS (14)
  - Pulmonary toxicity [Unknown]
  - Dizziness [Unknown]
  - Blindness [Unknown]
  - Lung disorder [Unknown]
  - Migraine [Unknown]
  - Product use in unapproved indication [Unknown]
  - Dyspnoea [Unknown]
  - Toxic optic neuropathy [Unknown]
  - Visual field defect [Unknown]
  - Pleurisy [Unknown]
  - Asthenia [Unknown]
  - Palpitations [Unknown]
  - Heart rate abnormal [Unknown]
  - Anhedonia [Unknown]

NARRATIVE: CASE EVENT DATE: 201501
